FAERS Safety Report 18307509 (Version 2)
Quarter: 2025Q3

REPORT INFORMATION
  Report Type: Spontaneous
  Country: EU (occurrence: EU)
  Receive Date: 20200924
  Receipt Date: 20250707
  Transmission Date: 20251021
  Serious: Yes (Death, Other)
  Sender: MYLAN
  Company Number: EU-PHARMATHEN-GPV2020PHT047202

PATIENT
  Age: 49 Year
  Sex: Female

DRUGS (1)
  1. VORICONAZOLE [Suspect]
     Active Substance: VORICONAZOLE
     Indication: Aspergillus test

REACTIONS (2)
  - Cardiogenic shock [Fatal]
  - Drug ineffective [Fatal]
